FAERS Safety Report 4548201-6 (Version None)
Quarter: 2005Q1

REPORT INFORMATION
  Report Type: 
  Country: None (occurrence: None)
  Receive Date: 20050105
  Receipt Date: 20050105
  Transmission Date: 20050727
  Serious: No
  Sender: FDA-Public Use
  Company Number: None

PATIENT
  Age: 68 Year
  Sex: Male
  Weight: 95.7 kg

DRUGS (1)
  1. SIMVASTATIN [Suspect]
     Indication: MIXED HYPERLIPIDAEMIA
     Dosage: 10MG, QHS,ORAL
     Route: 048
     Dates: start: 20041018, end: 20041122

REACTIONS (3)
  - HEPATIC ENZYME INCREASED [None]
  - MUSCLE SPASMS [None]
  - MUSCULAR WEAKNESS [None]
